FAERS Safety Report 7918460-8 (Version None)
Quarter: 2011Q4

REPORT INFORMATION
  Report Type: 
  Country: None (occurrence: None)
  Receive Date: 20111116
  Receipt Date: 20111110
  Transmission Date: 20120403
  Serious: Yes (Hospitalization)
  Sender: FDA-Public Use
  Company Number: PHHO2011FR09300

PATIENT
  Sex: Male
  Weight: 84 kg

DRUGS (15)
  1. PREDNISOLONE [Suspect]
     Indication: RENAL TRANSPLANT
     Dosage: 40 MG, DAILY
     Route: 048
     Dates: start: 20110309, end: 20110409
  2. BISOPROLOL FUMARATE [Concomitant]
  3. PENTACARINAT [Concomitant]
  4. VALGANCICLOVIR [Concomitant]
     Indication: ANTIVIRAL PROPHYLAXIS
  5. SODIUM BICARBONATE [Concomitant]
  6. RAD 666 / RAD 001A [Suspect]
     Indication: RENAL TRANSPLANT
     Dosage: 4 MG, DAILY
     Route: 048
     Dates: start: 20110309, end: 20110409
  7. NEORAL [Suspect]
     Indication: RENAL TRANSPLANT
     Dosage: 180 MG, DAILY
     Dates: start: 20110601
  8. RAD 666 / RAD 001A [Suspect]
     Dosage: 2.5 MG, DAILY
     Route: 048
     Dates: start: 20110410, end: 20110506
  9. THYMOGLOBULIN [Concomitant]
     Indication: RENAL TRANSPLANT
  10. ACETAMINOPHEN [Concomitant]
  11. MYCOPHENOLATE MOFETIL (CELLCEPT) [Suspect]
     Indication: RENAL TRANSPLANT
     Dosage: 3 G, DAILY
     Route: 048
     Dates: start: 20110309, end: 20110409
  12. PREDNISOLONE [Suspect]
     Dosage: 10 MG, DAILY
     Route: 048
     Dates: start: 20110410
  13. AMLODIPINE BESYLATE [Concomitant]
  14. MYCOPHENOLATE MOFETIL (CELLCEPT) [Suspect]
     Dosage: 3.5 G, DAILY
     Route: 048
     Dates: start: 20110410
  15. PANTOPRAZOLE [Concomitant]

REACTIONS (2)
  - INTERSTITIAL LUNG DISEASE [None]
  - LYMPHOCELE [None]
